FAERS Safety Report 13291863 (Version 2)
Quarter: 2017Q1

REPORT INFORMATION
  Report Type: Spontaneous
  Country: MW (occurrence: GB)
  Receive Date: 20170303
  Receipt Date: 20170321
  Transmission Date: 20170428
  Serious: Yes (Other)
  Sender: FDA-Public Use
  Company Number: MW-GLAXOSMITHKLINE-MW2017GSK027500

PATIENT
  Sex: Female

DRUGS (1)
  1. MALARONE [Suspect]
     Active Substance: ATOVAQUONE\PROGUANIL HYDROCHLORIDE
     Indication: MALARIA PROPHYLAXIS
     Dosage: UNK
     Dates: start: 201610

REACTIONS (4)
  - Product quality issue [Unknown]
  - Suspected counterfeit product [Unknown]
  - Malaria [Not Recovered/Not Resolved]
  - Drug ineffective [Not Recovered/Not Resolved]
